FAERS Safety Report 23262522 (Version 2)
Quarter: 2023Q4

REPORT INFORMATION
  Report Type: Spontaneous
  Country: US (occurrence: US)
  Receive Date: 20231205
  Receipt Date: 20231219
  Transmission Date: 20240110
  Serious: No
  Sender: FDA-Public Use
  Company Number: US-PFIZER INC-PV202300195622

PATIENT
  Age: 67 Year
  Sex: Female

DRUGS (5)
  1. VANCOMYCIN HYDROCHLORIDE [Suspect]
     Active Substance: VANCOMYCIN HYDROCHLORIDE
     Dosage: UNK
  2. SCOPOLAMINE [Suspect]
     Active Substance: SCOPOLAMINE
     Dosage: UNK
  3. PENICILLIN [Suspect]
     Active Substance: PENICILLIN
     Dosage: UNK
  4. BETADINE [Suspect]
     Active Substance: POVIDONE-IODINE
     Dosage: UNK
  5. IODINE [Suspect]
     Active Substance: IODINE
     Dosage: UNK

REACTIONS (3)
  - Drug hypersensitivity [Unknown]
  - Dyspnoea [Unknown]
  - Pruritus [Unknown]
